FAERS Safety Report 7010186-0 (Version None)
Quarter: 2010Q3

REPORT INFORMATION
  Report Type: 
  Country: None (occurrence: None)
  Receive Date: 20100923
  Receipt Date: 20091019
  Transmission Date: 20110219
  Serious: No
  Sender: FDA-Public Use
  Company Number: US-BAUSCH-2009BL005140

PATIENT
  Age: 0 Day
  Sex: Female
  Weight: 2 kg

DRUGS (1)
  1. ERYTHROCIN 1% [Suspect]
     Indication: OPHTHALMIA NEONATORUM
     Route: 047
     Dates: start: 20090929, end: 20090929

REACTIONS (2)
  - CONJUNCTIVAL HYPERAEMIA [None]
  - RASH [None]
